FAERS Safety Report 25775007 (Version 2)
Quarter: 2025Q3

REPORT INFORMATION
  Report Type: Report from Study
  Country: US (occurrence: US)
  Receive Date: 20250908
  Receipt Date: 20250915
  Transmission Date: 20251020
  Serious: Yes (Death)
  Sender: ALNYLAM PHARMACEUTICALS
  Company Number: US-ALNYLAM PHARMACEUTICALS, INC.-ALN-2025-005466

PATIENT

DRUGS (2)
  1. AMVUTTRA [Suspect]
     Active Substance: VUTRISIRAN
     Indication: Hereditary neuropathic amyloidosis
     Dosage: 25 MG/0.5 ML, Q3M
     Route: 058
     Dates: start: 20240307, end: 20240307
  2. AMVUTTRA [Suspect]
     Active Substance: VUTRISIRAN
     Indication: Dyskinesia

REACTIONS (2)
  - Death [Fatal]
  - Product use in unapproved indication [Unknown]
